FAERS Safety Report 9265507 (Version 1)
Quarter: 2013Q2

REPORT INFORMATION
  Report Type: Spontaneous
  Country: US (occurrence: US)
  Receive Date: 20130501
  Receipt Date: 20130501
  Transmission Date: 20140414
  Serious: No
  Sender: FDA-Public Use
  Company Number: US-PFIZER INC-2013131173

PATIENT
  Sex: Female
  Weight: 48.98 kg

DRUGS (3)
  1. XALATAN [Suspect]
     Dosage: UNK
  2. LATANOPROST [Suspect]
     Dosage: 1 GTT, AT NIGHT 1X/DAY
  3. LEVOTHYROXINE [Concomitant]
     Indication: THYROID DISORDER
     Dosage: 50 UG, 1X/DAY

REACTIONS (1)
  - Eye irritation [Not Recovered/Not Resolved]
